FAERS Safety Report 10880149 (Version 3)
Quarter: 2016Q3

REPORT INFORMATION
  Report Type: Spontaneous
  Country: FR (occurrence: FR)
  Receive Date: 20150302
  Receipt Date: 20160712
  Transmission Date: 20161109
  Serious: Yes (Other)
  Sender: FDA-Public Use
  Company Number: FR-009507513-1402FRA012315

PATIENT
  Sex: Female
  Weight: 70 kg

DRUGS (2)
  1. IMPLANON [Suspect]
     Active Substance: ETONOGESTREL
     Indication: CONTRACEPTION
     Dosage: 1 DF, UNKNOWN, LEFT ARM
     Route: 058
     Dates: start: 200906, end: 201511
  2. IMPLANON [Suspect]
     Active Substance: ETONOGESTREL
     Dosage: 1 DF, UNKNOWN
     Route: 059
     Dates: end: 2009

REACTIONS (10)
  - Medical device removal [Recovered/Resolved]
  - Amenorrhoea [Unknown]
  - Weight increased [Unknown]
  - Migration of implanted drug [Recovered/Resolved]
  - Device difficult to use [Not Recovered/Not Resolved]
  - Incorrect drug administration duration [Recovered/Resolved]
  - Difficulty removing drug implant [Recovered/Resolved]
  - Complication associated with device [Unknown]
  - Device embolisation [Recovered/Resolved]
  - Progesterone increased [Unknown]

NARRATIVE: CASE EVENT DATE: 2009
